FAERS Safety Report 7075353-9 (Version None)
Quarter: 2010Q4

REPORT INFORMATION
  Report Type: 
  Country: None (occurrence: None)
  Receive Date: 20101030
  Receipt Date: 20100830
  Transmission Date: 20110411
  Serious: No
  Sender: FDA-Public Use
  Company Number: US-WYE-H17207510

PATIENT
  Sex: Female

DRUGS (1)
  1. PRISTIQ [Suspect]
     Dosage: UNKNOWN
     Dates: start: 20100801

REACTIONS (4)
  - ANXIETY [None]
  - DIARRHOEA [None]
  - INSOMNIA [None]
  - NAUSEA [None]
